FAERS Safety Report 23121812 (Version 1)
Quarter: 2023Q4

REPORT INFORMATION
  Report Type: Other
  Country: EG (occurrence: None)
  Receive Date: 20231030
  Receipt Date: 20231030
  Transmission Date: 20240109
  Serious: Yes (Hospitalization)
  Sender: FDA-Public Use
  Company Number: EG-ROCHE-3445952

PATIENT
  Sex: Female

DRUGS (2)
  1. HERCEPTIN [Suspect]
     Active Substance: TRASTUZUMAB
     Indication: Breast cancer
     Route: 058
     Dates: start: 20230121
  2. XELODA [Suspect]
     Active Substance: CAPECITABINE
     Indication: Product used for unknown indication
     Dosage: 3 TABS IN MORNING THEN 3 TABS AT NIGHT IN FIRST AFTER THOSE?3 TABS IN MORNING THEN 2 TABS AT NIGHT
     Route: 065

REACTIONS (1)
  - Intracardiac thrombus [Recovered/Resolved]
